FAERS Safety Report 5246462-1 (Version None)
Quarter: 2007Q1

REPORT INFORMATION
  Report Type: 
  Country: None (occurrence: None)
  Receive Date: 20070226
  Receipt Date: 20070221
  Transmission Date: 20070707
  Serious: Yes (Life-Threatening, Hospitalization)
  Sender: FDA-Public Use
  Company Number: CHWYE140112JAN07

PATIENT
  Age: 72 Year
  Sex: Male

DRUGS (10)
  1. TAZOBAC [Suspect]
     Route: 041
     Dates: start: 20061006, end: 20061019
  2. SEROQUEL [Suspect]
     Indication: SCHIZOPHRENIA, PARANOID TYPE
     Route: 048
     Dates: end: 20061129
  3. MARCUMAR [Suspect]
     Indication: PERIPHERAL VASCULAR DISORDER
     Route: 048
     Dates: start: 20061114, end: 20061128
  4. ATORVASTATIN CALCIUM [Concomitant]
     Indication: HYPERLIPIDAEMIA
     Route: 048
     Dates: end: 20061208
  5. AMIODARONE HYDROCHLORIDE [Concomitant]
     Indication: TACHYCARDIA PAROXYSMAL
     Route: 048
     Dates: end: 20061128
  6. TRIATEC [Concomitant]
     Indication: LEFT VENTRICULAR FAILURE
     Route: 048
     Dates: end: 20061201
  7. NITRODERM [Concomitant]
     Indication: LEFT VENTRICULAR FAILURE
     Route: 062
  8. LIQUEMINE [Concomitant]
     Indication: PERIPHERAL VASCULAR DISORDER
     Route: 041
     Dates: start: 20061114
  9. CIPROFLOXACIN HYDROCHLORIDE [Suspect]
     Indication: OSTEOMYELITIS
     Dosage: 750 MG + 500 MG PER DAY
     Route: 048
     Dates: start: 20061108, end: 20061129
  10. MERONEM [Suspect]
     Indication: PNEUMONIA BACTERIAL
     Dosage: UNKNOWN
     Route: 048
     Dates: start: 20061027, end: 20061108

REACTIONS (4)
  - CHOLANGITIS [None]
  - CHOLELITHIASIS [None]
  - HEPATITIS TOXIC [None]
  - JAUNDICE CHOLESTATIC [None]
